FAERS Safety Report 9619500 (Version 8)
Quarter: 2014Q1

REPORT INFORMATION
  Report Type: Spontaneous
  Country: DE (occurrence: DE)
  Receive Date: 20131014
  Receipt Date: 20140314
  Transmission Date: 20141002
  Serious: Yes (Hospitalization, Other)
  Sender: FDA-Public Use
  Company Number: DE-PFIZER INC-2013246373

PATIENT
  Age: 50 Year
  Sex: Male
  Weight: 93 kg

DRUGS (20)
  1. AMIODARONE [Concomitant]
     Dosage: 200 MG, 1X/DAY
  2. PRADAXA [Concomitant]
     Dosage: 75 MG, 2X/DAY
  3. PULMICORT [Concomitant]
     Dosage: 200 UG, 2X/DAY
  4. BERODUAL [Concomitant]
     Dosage: 50 UG, 3X/DAY
  5. MIRTAZAPINE [Concomitant]
     Dosage: 7.5 MG, 1X/DAY
  6. QUENSYL [Concomitant]
     Dosage: 200 MG, 1X/DAY
     Dates: end: 201307
  7. QUENSYL [Concomitant]
     Dosage: 10 MG, 1X/DAY
  8. PANTOPRAZOL [Concomitant]
     Dosage: 20 MG, 2X/DAY
  9. TRAMADOL [Concomitant]
     Dosage: 50 MG, 2X1-2X2 AS NEEDED
  10. ZOPLICONE [Concomitant]
     Dosage: 7.5 MG, 0-0-1 AS NEEDED
  11. PREDNISOLON [Concomitant]
     Dosage: 5 MG,0-0-1 AS NEEDED
  12. NOVALGIN [Concomitant]
  13. BISOPROLOL [Concomitant]
     Indication: ARRHYTHMIA
  14. CITALOPRAM [Concomitant]
     Indication: DEPRESSION
     Dosage: 45 MG, DAILY
  15. DILTIAZEM [Concomitant]
     Indication: CONNECTIVE TISSUE DISORDER
     Dosage: 90 MG, 1X/DAY AS NEEDED
  16. DILTIAZEM [Concomitant]
     Indication: RAYNAUD^S PHENOMENON
  17. METOPROLOL SUCCINATE [Concomitant]
     Dosage: 47.5 MG 1-0-1
  18. LYRICA [Suspect]
     Indication: FIBROMYALGIA
     Dosage: 50 MG, 2X/DAY
     Dates: start: 20130117, end: 201304
  19. LYRICA [Suspect]
     Dosage: 75 MG, 2X/DAY
     Dates: start: 201304, end: 201308
  20. LYRICA [Suspect]
     Dosage: 75 MG, 1X/DAY

REACTIONS (17)
  - Blood creatine phosphokinase increased [Unknown]
  - Asthma [Unknown]
  - Atrial fibrillation [Recovered/Resolved]
  - Atrial flutter [Recovered/Resolved]
  - Depression [Not Recovered/Not Resolved]
  - Dyspnoea exertional [Recovered/Resolved]
  - Pulmonary hypertension [Not Recovered/Not Resolved]
  - Pulmonary embolism [Recovering/Resolving]
  - Collagen disorder [Unknown]
  - Myositis [Unknown]
  - Rhabdomyolysis [Unknown]
  - Anxiety disorder [Unknown]
  - Feeling abnormal [Not Recovered/Not Resolved]
  - Fatigue [Unknown]
  - Chest discomfort [Recovered/Resolved]
  - Pain [Not Recovered/Not Resolved]
  - Lymphadenopathy [Unknown]
